FAERS Safety Report 8301483-7 (Version None)
Quarter: 2012Q2

REPORT INFORMATION
  Report Type: 
  Country: None (occurrence: None)
  Receive Date: 20120420
  Receipt Date: 20120413
  Transmission Date: 20120825
  Serious: Yes (Hospitalization, Other)
  Sender: FDA-Public Use
  Company Number: PHHY2012JP017961

PATIENT
  Sex: Male
  Weight: 0.78 kg

DRUGS (15)
  1. NICARDIPINE HCL [Suspect]
     Indication: BLOOD PRESSURE INCREASED
     Dosage: 120 MG, DAILY
     Route: 064
     Dates: start: 20110415, end: 20110416
  2. PROPOFOL [Suspect]
     Route: 064
  3. ROCURONIUM BROMIDE [Suspect]
     Route: 064
  4. PROPOFOL [Concomitant]
     Route: 064
     Dates: start: 20110416, end: 20110416
  5. MIDAZOLAM [Concomitant]
     Dates: start: 20110416, end: 20110416
  6. ROCURONIUM BROMIDE [Concomitant]
     Dates: start: 20110416, end: 20110416
  7. BETAMETHASONE [Suspect]
     Route: 064
  8. AOS [Suspect]
     Route: 064
  9. NEUPOGEN [Suspect]
     Route: 064
  10. ATARAX [Concomitant]
     Route: 064
  11. FENTANYL-100 [Concomitant]
     Route: 064
     Dates: start: 20110416, end: 20110416
  12. SEVOFLURANE [Concomitant]
     Route: 064
     Dates: start: 20110416, end: 20110416
  13. GLUCOSE [Concomitant]
  14. FENTANYL-100 [Suspect]
     Route: 064
  15. SUGAMMADEX [Suspect]
     Route: 064

REACTIONS (7)
  - TACHYPNOEA [None]
  - LOW BIRTH WEIGHT BABY [None]
  - FOETAL GROWTH RESTRICTION [None]
  - ABDOMINAL DISTENSION [None]
  - FOETAL EXPOSURE DURING PREGNANCY [None]
  - PREMATURE BABY [None]
  - BLOOD GLUCOSE DECREASED [None]
